FAERS Safety Report 8113189-8 (Version None)
Quarter: 2012Q1

REPORT INFORMATION
  Report Type: 
  Country: None (occurrence: None)
  Receive Date: 20120203
  Receipt Date: 20120124
  Transmission Date: 20120608
  Serious: Yes (Disabling)
  Sender: FDA-Public Use
  Company Number: PHHY2012CA007207

PATIENT
  Sex: Male

DRUGS (5)
  1. ALISKIREN [Suspect]
     Indication: HYPERTENSION
     Dosage: 150 MG DAILY
     Route: 048
     Dates: start: 20090917, end: 20120112
  2. CRESTOR [Concomitant]
  3. NORVASC [Concomitant]
  4. REACTINE [Concomitant]
  5. AVALIDE [Concomitant]

REACTIONS (1)
  - PARAESTHESIA [None]
